FAERS Safety Report 9881184 (Version 1)
Quarter: 2014Q1

REPORT INFORMATION
  Report Type: Spontaneous
  Country: FR (occurrence: FR)
  Receive Date: 20140207
  Receipt Date: 20140207
  Transmission Date: 20141002
  Serious: Yes (Life-Threatening, Hospitalization)
  Sender: FDA-Public Use
  Company Number: FR-ASTRAZENECA-2014SE08763

PATIENT
  Age: 23145 Day
  Sex: Male
  Weight: 77.5 kg

DRUGS (7)
  1. BRILIQUE [Suspect]
     Indication: CORONARY ANGIOPLASTY
     Route: 048
     Dates: start: 20131114, end: 20131227
  2. KARDEGIC [Suspect]
     Indication: CORONARY ANGIOPLASTY
     Route: 048
     Dates: start: 20131114
  3. ATORVASTATINE [Concomitant]
     Dates: start: 201311
  4. RAMIPRIL [Concomitant]
     Dates: start: 201311
  5. BISOPROLOL [Concomitant]
     Dates: start: 201311
  6. ESOMEPRAZOLE [Concomitant]
     Dates: start: 201311
  7. PARACETAMOL [Concomitant]
     Indication: PAIN
     Dates: start: 201311

REACTIONS (7)
  - Haemorrhagic anaemia [Recovered/Resolved]
  - Diverticulum intestinal [Unknown]
  - Large intestine polyp [Unknown]
  - Rectal haemorrhage [Recovered/Resolved]
  - Melaena [Unknown]
  - Therapy cessation [Unknown]
  - Incorrect dose administered [Recovered/Resolved]
